FAERS Safety Report 5480293-2 (Version None)
Quarter: 2007Q4

REPORT INFORMATION
  Report Type: 
  Country: None (occurrence: None)
  Receive Date: 20071003
  Receipt Date: 20070920
  Transmission Date: 20080405
  Serious: Yes (Hospitalization)
  Sender: FDA-Public Use
  Company Number: 2007EU001067

PATIENT
  Age: 51 Year
  Sex: Male
  Weight: 65 kg

DRUGS (6)
  1. TACROLIMUS [Suspect]
     Indication: RENAL TRANSPLANT
     Dosage: 4.5 MG/D, ORAL;  8 MG/D, ORAL; 5 MG/D, ORAL; 4 MG/D, ORAL
     Route: 048
     Dates: start: 20070107
  2. EVEROLIMUS(EVEROLIMUS) [Suspect]
     Indication: RENAL TRANSPLANT
     Dosage: 1.5 MG, /D, ORAL
     Route: 048
     Dates: start: 20070107
  3. INSULIN [Concomitant]
  4. PARACETAMOL [Concomitant]
  5. FOSFOMYCIN (FOSFOMYCIN) [Concomitant]
  6. MEROPENEM (MEROPENEM) [Concomitant]

REACTIONS (3)
  - ESCHERICHIA INFECTION [None]
  - PYELONEPHRITIS [None]
  - URINARY TRACT INFECTION [None]
